FAERS Safety Report 25252997 (Version 1)
Quarter: 2025Q2

REPORT INFORMATION
  Report Type: Spontaneous
  Country: US (occurrence: US)
  Receive Date: 20250430
  Receipt Date: 20250430
  Transmission Date: 20250717
  Serious: No
  Sender: BIONPHARMA INC.
  Company Number: US-Bion-014882

PATIENT
  Sex: Female

DRUGS (1)
  1. IBUPROFEN [Suspect]
     Active Substance: IBUPROFEN
     Indication: Product used for unknown indication

REACTIONS (1)
  - Extra dose administered [Unknown]
